FAERS Safety Report 9109509 (Version 1)
Quarter: 2013Q1

REPORT INFORMATION
  Report Type: Spontaneous
  Country: US (occurrence: US)
  Receive Date: 20130222
  Receipt Date: 20130222
  Transmission Date: 20140127
  Serious: No
  Sender: FDA-Public Use
  Company Number: US-BAYER-2013-020652

PATIENT
  Age: 78 Year
  Sex: Male
  Weight: 98 kg

DRUGS (3)
  1. ALEVE CAPLET/TABLET,MIDOL EXTENDED RELIEF CAPLET [Suspect]
     Dosage: 2 DF, BID
     Route: 048
     Dates: start: 20130206
  2. MULTI VITAMIN [Concomitant]
  3. JALYN [Concomitant]

REACTIONS (1)
  - Overdose [None]
